FAERS Safety Report 24849739 (Version 1)
Quarter: 2025Q1

REPORT INFORMATION
  Report Type: Spontaneous
  Country: US (occurrence: US)
  Receive Date: 20250116
  Receipt Date: 20250116
  Transmission Date: 20250408
  Serious: Yes (Other)
  Sender: ADVANZ PHARMA
  Company Number: US-ADVANZ PHARMA-202501000329

PATIENT

DRUGS (1)
  1. SALAGEN [Suspect]
     Active Substance: PILOCARPINE HYDROCHLORIDE
     Indication: Dry mouth
     Route: 048

REACTIONS (2)
  - Choking [Unknown]
  - Drug ineffective [Unknown]
